FAERS Safety Report 6041481-X (Version None)
Quarter: 2009Q1

REPORT INFORMATION
  Report Type: 
  Country: None (occurrence: None)
  Receive Date: 20090116
  Receipt Date: 20081017
  Transmission Date: 20090719
  Serious: No
  Sender: FDA-Public Use
  Company Number: US-BRISTOL-MYERS SQUIBB COMPANY-14376578

PATIENT
  Sex: Female

DRUGS (5)
  1. ABILIFY [Suspect]
     Indication: MAJOR DEPRESSION
     Dates: start: 20080101
  2. ANTIDEPRESSANT [Concomitant]
     Indication: MAJOR DEPRESSION
  3. CYMBALTA [Concomitant]
  4. LUNESTA [Concomitant]
  5. BUSPAR [Concomitant]

REACTIONS (2)
  - BACK PAIN [None]
  - INSOMNIA [None]
